FAERS Safety Report 9300247 (Version 1)
Quarter: 2013Q2

REPORT INFORMATION
  Report Type: Spontaneous
  Country: AT (occurrence: AT)
  Receive Date: 20130521
  Receipt Date: 20130521
  Transmission Date: 20140414
  Serious: Yes (Hospitalization)
  Sender: FDA-Public Use
  Company Number: AT-JNJFOC-20130304762

PATIENT
  Age: 80 Year
  Sex: Female

DRUGS (4)
  1. RISPERDAL [Suspect]
     Indication: PRODUCT USED FOR UNKNOWN INDICATION
     Route: 065
     Dates: start: 201211
  2. SIMVASTATIN [Concomitant]
     Route: 065
  3. VELMETIA [Concomitant]
     Route: 065
  4. SERTRALINE [Concomitant]
     Route: 065

REACTIONS (5)
  - Condition aggravated [Unknown]
  - Dementia [Unknown]
  - Asthenia [Not Recovered/Not Resolved]
  - Musculoskeletal stiffness [Not Recovered/Not Resolved]
  - Gait disturbance [Unknown]
